FAERS Safety Report 9842799 (Version 1)
Quarter: 2014Q1

REPORT INFORMATION
  Report Type: Spontaneous
  Country: US (occurrence: US)
  Receive Date: 20140124
  Receipt Date: 20140124
  Transmission Date: 20141002
  Serious: Yes (Other)
  Sender: FDA-Public Use
  Company Number: US-BAXTER-2014BAX003064

PATIENT
  Age: 73 Year
  Sex: Male

DRUGS (1)
  1. OSMITROL INJECTION (MANNITOL INJECTION, USP) [Suspect]
     Indication: INTRACRANIAL PRESSURE INCREASED
     Dosage: INFUSED OVER 20 MINUTES
     Route: 040

REACTIONS (1)
  - Extravasation [Recovered/Resolved]
